FAERS Safety Report 16860065 (Version 2)
Quarter: 2020Q1

REPORT INFORMATION
  Report Type: Spontaneous
  Country: IT (occurrence: IT)
  Receive Date: 20190927
  Receipt Date: 20200211
  Transmission Date: 20200409
  Serious: Yes (Other)
  Sender: FDA-Public Use
  Company Number: IT-BAUSCH-BL-2019-054724

PATIENT
  Age: 63 Year
  Sex: Male

DRUGS (8)
  1. OXALIPLATIN. [Suspect]
     Active Substance: OXALIPLATIN
     Indication: RECTAL NEOPLASM
     Dosage: 2 MONTHS 16 DAYS
     Route: 042
     Dates: start: 20190314, end: 20190529
  2. LOPERAMIDE HEXAL [Concomitant]
     Indication: PRODUCT USED FOR UNKNOWN INDICATION
  3. FLUOROURACIL AHCL [Suspect]
     Active Substance: FLUOROURACIL
     Indication: RECTAL NEOPLASM
     Dosage: 2 MONTHS 15 DAYS
     Route: 042
     Dates: start: 20190314, end: 20190528
  4. ZARZIO [Concomitant]
     Active Substance: FILGRASTIM
     Indication: PRODUCT USED FOR UNKNOWN INDICATION
  5. TWICE [Concomitant]
     Indication: PRODUCT USED FOR UNKNOWN INDICATION
  6. CALCIUM LEVOFOLINATE [Concomitant]
     Active Substance: LEVOLEUCOVORIN CALCIUM
     Indication: PRODUCT USED FOR UNKNOWN INDICATION
  7. ONDANSETRONE ACCORD HEALTHCARE [Concomitant]
     Active Substance: ONDANSETRON HYDROCHLORIDE
     Indication: PRODUCT USED FOR UNKNOWN INDICATION
  8. PLASIL [Concomitant]
     Active Substance: METOCLOPRAMIDE HYDROCHLORIDE
     Indication: PRODUCT USED FOR UNKNOWN INDICATION

REACTIONS (8)
  - Asthenia [Unknown]
  - Neutropenia [Unknown]
  - Phlebitis [Unknown]
  - Insomnia [Unknown]
  - Hypersensitivity [Unknown]
  - Dysgeusia [Unknown]
  - Nausea [Unknown]
  - Dry skin [Unknown]

NARRATIVE: CASE EVENT DATE: 20190414
